FAERS Safety Report 15012166 (Version 2)
Quarter: 2018Q3

REPORT INFORMATION
  Report Type: Report from Study
  Country: None (occurrence: TW)
  Receive Date: 20180614
  Receipt Date: 20180731
  Transmission Date: 20181010
  Serious: Yes (Hospitalization)
  Sender: FDA-Public Use
  Company Number: TW-ABBVIE-18K-153-2386959-00

PATIENT
  Age: 27 Year
  Sex: Male
  Weight: 49 kg

DRUGS (5)
  1. HUMIRA [Suspect]
     Active Substance: ADALIMUMAB
     Route: 058
     Dates: start: 20180724
  2. HUMIRA [Suspect]
     Active Substance: ADALIMUMAB
     Indication: CROHN^S DISEASE
     Route: 058
     Dates: start: 20180515, end: 20180529
  3. MIYARISAN BM [Concomitant]
     Indication: ABDOMINAL PAIN
  4. MIYARISAN BM [Concomitant]
     Indication: DIARRHOEA
     Dosage: 1000 MG PER PACKAGE
     Route: 048
  5. IMURAN [Concomitant]
     Active Substance: AZATHIOPRINE
     Indication: IMMUNOSUPPRESSANT DRUG THERAPY
     Route: 048

REACTIONS (8)
  - Gastrointestinal disorder [Recovering/Resolving]
  - Malaise [Recovering/Resolving]
  - Occult blood positive [Unknown]
  - Nausea [Recovering/Resolving]
  - Peritonitis [Unknown]
  - Ascites [Unknown]
  - Crohn^s disease [Recovering/Resolving]
  - Haemoglobin decreased [Unknown]

NARRATIVE: CASE EVENT DATE: 20180606
